FAERS Safety Report 8540605-X (Version None)
Quarter: 2012Q3

REPORT INFORMATION
  Report Type: 
  Country: None (occurrence: None)
  Receive Date: 20120726
  Receipt Date: 20120718
  Transmission Date: 20120928
  Serious: Yes (Hospitalization)
  Sender: FDA-Public Use
  Company Number: GB-UCBSA-062378

PATIENT

DRUGS (3)
  1. CIMZIA [Suspect]
     Dosage: INJECTION ONCE A FORNIGHT
  2. CIMZIA [Suspect]
     Dosage: UNKNOWN DOSE
  3. METHO [Concomitant]
     Dosage: SMALL DOSE WEEKLY

REACTIONS (1)
  - THERAPEUTIC RESPONSE DECREASED [None]
